FAERS Safety Report 5674237-8 (Version None)
Quarter: 2008Q1

REPORT INFORMATION
  Report Type: 
  Country: None (occurrence: None)
  Receive Date: 20080320
  Receipt Date: 20080305
  Transmission Date: 20080703
  Serious: Yes (Death)
  Sender: FDA-Public Use
  Company Number: BE-AMGEN-UK268793

PATIENT
  Sex: Female

DRUGS (5)
  1. KEPIVANCE [Suspect]
     Indication: MUCOSAL INFLAMMATION
     Route: 042
     Dates: start: 20080218, end: 20080224
  2. FLUCONAZOLE [Concomitant]
     Route: 048
     Dates: start: 20080220, end: 20080303
  3. ACYCLOVIR [Concomitant]
     Dates: start: 20080220, end: 20080303
  4. OMEPRAZOLE [Concomitant]
     Route: 048
  5. MELPHALAN [Concomitant]

REACTIONS (1)
  - DEATH [None]
